FAERS Safety Report 17390557 (Version 1)
Quarter: 2020Q1

REPORT INFORMATION
  Report Type: Spontaneous
  Country: US (occurrence: US)
  Receive Date: 20200207
  Receipt Date: 20200207
  Transmission Date: 20200409
  Serious: No
  Sender: FDA-Public Use
  Company Number: US-PRAGMA PHARMACEUTICALS, LLC-2019PRG00166

PATIENT
  Age: 73 Year
  Sex: Female
  Weight: 88.44 kg

DRUGS (2)
  1. XELJANZ [Suspect]
     Active Substance: TOFACITINIB CITRATE
     Indication: RHEUMATOID ARTHRITIS
     Dosage: 5 MG, 2X/DAY
     Route: 048
     Dates: start: 201806, end: 20180821
  2. KEFLEX [Suspect]
     Active Substance: CEPHALEXIN
     Indication: URINARY TRACT INFECTION
     Dosage: UNK UNK, 2X/DAY
     Dates: start: 20180814, end: 201808

REACTIONS (5)
  - Drug interaction [Recovered/Resolved]
  - Hypersomnia [Recovering/Resolving]
  - Upper respiratory tract infection [Recovered/Resolved]
  - Sinusitis [Recovered/Resolved]
  - Herpes simplex [Recovering/Resolving]

NARRATIVE: CASE EVENT DATE: 201808
